FAERS Safety Report 12573845 (Version 2)
Quarter: 2016Q3

REPORT INFORMATION
  Report Type: Spontaneous
  Country: BR (occurrence: BR)
  Receive Date: 20160720
  Receipt Date: 20160725
  Transmission Date: 20161109
  Serious: No
  Sender: FDA-Public Use
  Company Number: BR-PFIZER INC-2016349800

PATIENT
  Sex: Male

DRUGS (1)
  1. CAVERJECT [Suspect]
     Active Substance: ALPROSTADIL
     Indication: PROSTATE CANCER
     Dosage: 20 UG, UNK
     Dates: start: 2011

REACTIONS (1)
  - Product use issue [Unknown]
